FAERS Safety Report 14747726 (Version 1)
Quarter: 2018Q2

REPORT INFORMATION
  Report Type: Spontaneous
  Country: AU (occurrence: AU)
  Receive Date: 20180411
  Receipt Date: 20180411
  Transmission Date: 20180711
  Serious: Yes (Other)
  Sender: FDA-Public Use
  Company Number: PHHY2018AU055573

PATIENT
  Age: 34 Year
  Sex: Male

DRUGS (1)
  1. PHENTERMINE. [Suspect]
     Active Substance: PHENTERMINE
     Indication: OBESITY
     Route: 065

REACTIONS (2)
  - Cardiogenic shock [Unknown]
  - Paraganglion neoplasm [Recovered/Resolved]
